FAERS Safety Report 11704311 (Version 1)
Quarter: 2015Q4

REPORT INFORMATION
  Report Type: Spontaneous
  Country: IE (occurrence: IE)
  Receive Date: 20151106
  Receipt Date: 20151106
  Transmission Date: 20160304
  Serious: Yes (Other)
  Sender: FDA-Public Use
  Company Number: IE-009507513-1511IRL000266

PATIENT

DRUGS (1)
  1. SINEMET PLUS 25MG/100MG TABLETS [Suspect]
     Active Substance: CARBIDOPA\LEVODOPA
     Dosage: UNK
     Route: 048

REACTIONS (2)
  - Oesophageal carcinoma [Not Recovered/Not Resolved]
  - Circumstance or information capable of leading to medication error [Unknown]
